FAERS Safety Report 5418239-5 (Version None)
Quarter: 2007Q3

REPORT INFORMATION
  Report Type: 
  Country: None (occurrence: None)
  Receive Date: 20070817
  Receipt Date: 20070814
  Transmission Date: 20080115
  Serious: Yes (Life-Threatening, Hospitalization, Other)
  Sender: FDA-Public Use
  Company Number: A0655053A

PATIENT
  Age: 49 Year
  Weight: 80 kg

DRUGS (2)
  1. LAMICTAL [Suspect]
     Indication: BIPOLAR DISORDER
     Dosage: 100MG PER DAY
     Route: 048
     Dates: start: 20061228, end: 20070223
  2. ZOLOFT [Concomitant]

REACTIONS (6)
  - MUCOUS MEMBRANE DISORDER [None]
  - PYREXIA [None]
  - RASH [None]
  - SCAR [None]
  - SKIN EXFOLIATION [None]
  - STEVENS-JOHNSON SYNDROME [None]
